FAERS Safety Report 5236124-9 (Version None)
Quarter: 2007Q1

REPORT INFORMATION
  Report Type: 
  Country: None (occurrence: None)
  Receive Date: 20070212
  Receipt Date: 20070209
  Transmission Date: 20070707
  Serious: Yes (Other)
  Sender: FDA-Public Use
  Company Number: HQWYE418118DEC06

PATIENT
  Sex: Male
  Weight: 94.43 kg

DRUGS (5)
  1. SIROLIMUS [Suspect]
     Indication: PROPHYLAXIS AGAINST TRANSPLANT REJECTION
     Route: 048
     Dates: start: 20061107
  2. CELLCEPT [Concomitant]
  3. ZETIA [Concomitant]
  4. AMLODIPINE [Concomitant]
  5. ATENOLOL [Concomitant]

REACTIONS (2)
  - DRUG LEVEL FLUCTUATING [None]
  - LIVER TRANSPLANT REJECTION [None]
